FAERS Safety Report 18691347 (Version 1)
Quarter: 2021Q1

REPORT INFORMATION
  Report Type: Spontaneous
  Country: AU (occurrence: AU)
  Receive Date: 20210101
  Receipt Date: 20210101
  Transmission Date: 20210419
  Serious: Yes (Other)
  Sender: FDA-Public Use
  Company Number: AU-EUSA PHARMA (NETHERLANDS) B.V.-2020AU000303

PATIENT

DRUGS (1)
  1. SYLVANT [Suspect]
     Active Substance: SILTUXIMAB
     Indication: PRODUCT USED FOR UNKNOWN INDICATION
     Dosage: 583 MG, 3 WEEKS
     Route: 065
     Dates: start: 20201123

REACTIONS (1)
  - Haemorrhage [Unknown]
